FAERS Safety Report 7623388-7 (Version None)
Quarter: 2011Q3

REPORT INFORMATION
  Report Type: 
  Country: None (occurrence: None)
  Receive Date: 20110720
  Receipt Date: 20110708
  Transmission Date: 20111222
  Serious: Yes (Other)
  Sender: FDA-Public Use
  Company Number: JP-ROCHE-789942

PATIENT
  Age: 60 Year
  Sex: Female

DRUGS (2)
  1. XELODA [Suspect]
     Indication: BREAST CANCER
     Route: 048
  2. TYKERB [Suspect]
     Indication: BREAST CANCER
     Route: 048

REACTIONS (1)
  - STEVENS-JOHNSON SYNDROME [None]
